FAERS Safety Report 5656979-3 (Version None)
Quarter: 2008Q1

REPORT INFORMATION
  Report Type: 
  Country: None (occurrence: None)
  Receive Date: 20080310
  Receipt Date: 20080225
  Transmission Date: 20080703
  Serious: Yes (Hospitalization)
  Sender: FDA-Public Use
  Company Number: B0510995A

PATIENT
  Age: 52 Year
  Sex: Male

DRUGS (3)
  1. AUGMENTIN '125' [Suspect]
     Indication: SINUSITIS
     Route: 048
     Dates: start: 20070710, end: 20070716
  2. ROCEPHIN [Suspect]
     Indication: DRUG USE FOR UNKNOWN INDICATION
     Dosage: 1G PER DAY
     Route: 042
     Dates: start: 20070721, end: 20070725
  3. KETEK [Suspect]
     Indication: SINUSITIS
     Route: 048
     Dates: start: 20070602, end: 20070607

REACTIONS (5)
  - EOSINOPHILIA [None]
  - GENERAL PHYSICAL HEALTH DETERIORATION [None]
  - HEPATITIS CHOLESTATIC [None]
  - JAUNDICE [None]
  - WEIGHT DECREASED [None]
